FAERS Safety Report 25488821 (Version 1)
Quarter: 2025Q2

REPORT INFORMATION
  Report Type: Spontaneous
  Country: CN (occurrence: CN)
  Receive Date: 20250627
  Receipt Date: 20250627
  Transmission Date: 20250717
  Serious: Yes (Other)
  Sender: PFIZER
  Company Number: CN-PFIZER INC-PV202500075858

PATIENT
  Age: 71 Year
  Sex: Female
  Weight: 59.5 kg

DRUGS (1)
  1. VORICONAZOLE [Suspect]
     Active Substance: VORICONAZOLE
     Indication: Pneumonia
     Dosage: 0.2 G, 2X/DAY (DOUBLE THE FIRST DOSE)
     Route: 041
     Dates: start: 20250516, end: 20250519

REACTIONS (3)
  - Hallucination [Recovering/Resolving]
  - Xanthopsia [Recovering/Resolving]
  - Chloropsia [Recovering/Resolving]

NARRATIVE: CASE EVENT DATE: 20250518
